FAERS Safety Report 4338024-5 (Version None)
Quarter: 2004Q2

REPORT INFORMATION
  Report Type: 
  Country: None (occurrence: None)
  Receive Date: 20040408
  Receipt Date: 20040331
  Transmission Date: 20050107
  Serious: Yes (Death)
  Sender: FDA-Public Use
  Company Number: FR-JNJFOC-20040400369

PATIENT
  Age: 78 Year
  Sex: Female
  Weight: 85 kg

DRUGS (4)
  1. REOPRO [Suspect]
     Indication: CORONARY ANGIOPLASTY
     Dosage: INTRAVENOUS
     Route: 042
     Dates: start: 20040114
  2. HEPARIN [Concomitant]
  3. PLAVIX [Concomitant]
  4. ASPIRIN [Concomitant]

REACTIONS (1)
  - SHOCK HAEMORRHAGIC [None]
